FAERS Safety Report 10606222 (Version 1)
Quarter: 2014Q4

REPORT INFORMATION
  Report Type: Spontaneous
  Country: AT (occurrence: None)
  Receive Date: 20141121
  Receipt Date: 20141121
  Transmission Date: 20150529
  Serious: Yes (Hospitalization)
  Sender: FDA-Public Use
  Company Number: 2627812

PATIENT
  Age: 75 Year
  Sex: Female
  Weight: 72.2 kg

DRUGS (6)
  1. DEXAMETHASONE. [Concomitant]
     Active Substance: DEXAMETHASONE
  2. ONDANSETRON [Concomitant]
     Active Substance: ONDANSETRON
  3. RANITIDINE HYDROCHLORIDE. [Concomitant]
     Active Substance: RANITIDINE HYDROCHLORIDE
  4. DEXAMETHASONE. [Concomitant]
     Active Substance: DEXAMETHASONE
  5. PACLITAXEL. [Suspect]
     Active Substance: PACLITAXEL
     Indication: CHEMOTHERAPY
     Dates: start: 20141015
  6. DIMETINDENE MALEATE [Concomitant]
     Active Substance: DIMETHINDENE MALEATE

REACTIONS (2)
  - Malaise [None]
  - Erythema [None]

NARRATIVE: CASE EVENT DATE: 20141015
